FAERS Safety Report 9602887 (Version 3)
Quarter: 2014Q1

REPORT INFORMATION
  Report Type: Spontaneous
  Country: US (occurrence: None)
  Receive Date: 20131003
  Receipt Date: 20140130
  Transmission Date: 20141002
  Serious: Yes (Hospitalization, Other)
  Sender: FDA-Public Use
  Company Number: 2012-000137

PATIENT
  Age: 78 Year
  Sex: Female
  Weight: 79.4 kg

DRUGS (10)
  1. ACTONEL [Suspect]
     Dosage: DOSAGE REGIMEN UNKNOWN
     Route: 048
  2. FOSAMAX [Suspect]
     Route: 048
     Dates: start: 20020311, end: 2009
  3. AMLODIPINE (AMLODIPINE) [Concomitant]
  4. FLUOXETINE (FLUOXETINE) [Concomitant]
  5. LEFLUNOMIDE (LEFLUNOMIDE) [Concomitant]
  6. CALCIUM (CALCIUM) [Concomitant]
  7. VITAMIN D /00318501/COLCALCIFEROL) [Concomitant]
  8. PREDNISONE [Concomitant]
  9. ALENDRONATE [Suspect]
     Route: 048
     Dates: start: 20080512, end: 2009
  10. FOLIC ACID [Concomitant]

REACTIONS (7)
  - Femur fracture [None]
  - Fall [None]
  - Pain in extremity [None]
  - Stress fracture [None]
  - Fracture displacement [None]
  - Osteoarthritis [None]
  - Exostosis [None]
